FAERS Safety Report 8369625-5 (Version None)
Quarter: 2012Q1

REPORT INFORMATION
  Report Type: 
  Country: None (occurrence: None)
  Receive Date: 20120323
  Receipt Date: 20110223
  Transmission Date: 20120608
  Serious: Yes (Hospitalization)
  Sender: FDA-Public Use
  Company Number: 163-21880-11012510

PATIENT
  Age: 85 Year
  Sex: Female
  Weight: 66.7 kg

DRUGS (6)
  1. LANTUS [Concomitant]
  2. DIOVAN [Concomitant]
  3. LYRICA [Concomitant]
  4. TOPROL-XL [Concomitant]
  5. COUMADIN [Concomitant]
  6. REVLIMID [Suspect]
     Indication: MULTIPLE MYELOMA
     Dosage: 2.5 MG, 1 IN 2 D, PO
     Route: 048
     Dates: start: 20101001

REACTIONS (2)
  - VIRAL INFECTION [None]
  - PYREXIA [None]
